FAERS Safety Report 6873964-4 (Version None)
Quarter: 2010Q3

REPORT INFORMATION
  Report Type: 
  Country: None (occurrence: None)
  Receive Date: 20100723
  Receipt Date: 20090413
  Transmission Date: 20110219
  Serious: No
  Sender: FDA-Public Use
  Company Number: US-PFIZER INC-2009198464

PATIENT
  Sex: Female
  Weight: 64 kg

DRUGS (13)
  1. CHANTIX [Suspect]
     Indication: SMOKING CESSATION THERAPY
     Dosage: 0.5 MG, 1X/DAY
     Route: 048
     Dates: start: 20080407, end: 20090412
  2. ACETOPHENAZINE MALEATE [Concomitant]
     Dosage: UNK
  3. VYTORIN [Concomitant]
     Dosage: UNK
  4. TRICOR [Concomitant]
     Dosage: UNK
  5. REQUIP [Concomitant]
     Dosage: UNK
  6. RESTORIL [Concomitant]
     Dosage: UNK
  7. XANAX [Concomitant]
     Dosage: UNK
  8. SPIRIVA [Concomitant]
     Dosage: UNK
     Route: 055
  9. VICOPROFEN [Concomitant]
     Indication: PAIN
     Dosage: UNK
  10. VICOPROFEN [Concomitant]
     Indication: NERVE INJURY
  11. FISH OIL [Concomitant]
     Dosage: UNK
  12. VITAMIN D [Concomitant]
     Dosage: UNK
  13. VITAMIN C [Concomitant]
     Dosage: UNK

REACTIONS (4)
  - ABNORMAL DREAMS [None]
  - MUSCLE SPASMS [None]
  - NIGHTMARE [None]
  - SOMNOLENCE [None]
